FAERS Safety Report 7183240-0 (Version None)
Quarter: 2010Q4

REPORT INFORMATION
  Report Type: 
  Country: None (occurrence: None)
  Receive Date: 20101222
  Receipt Date: 20100401
  Transmission Date: 20110411
  Serious: No
  Sender: FDA-Public Use
  Company Number: A0852984A

PATIENT
  Age: 24 Year
  Sex: Female

DRUGS (3)
  1. FLONASE [Suspect]
     Route: 045
  2. BIRTH CONTROL PILL [Concomitant]
  3. ZOLOFT [Concomitant]

REACTIONS (1)
  - NASAL DISCOMFORT [None]
